FAERS Safety Report 9198474 (Version 1)
Quarter: 2013Q1

REPORT INFORMATION
  Report Type: Spontaneous
  Country: US (occurrence: None)
  Receive Date: 20130327
  Receipt Date: 20130327
  Transmission Date: 20140127
  Serious: Yes (Hospitalization)
  Sender: FDA-Public Use
  Company Number: None

PATIENT
  Age: 65 Year
  Sex: 0
  Weight: 127 kg

DRUGS (14)
  1. WARFARIN [Suspect]
     Indication: DEEP VEIN THROMBOSIS
     Dosage: PRIOR TO ADMISSION
     Route: 048
  2. WARFARIN [Suspect]
     Indication: PULMONARY EMBOLISM
     Dosage: PRIOR TO ADMISSION
     Route: 048
  3. ALLOPURINOL [Concomitant]
  4. CALCIUM CARBONATE WITH VITAMIN D [Concomitant]
  5. CARISOPRODOL [Concomitant]
  6. FUROSEMIDE [Concomitant]
  7. GABAPENTIN [Concomitant]
  8. INSULIN 70/30 [Concomitant]
  9. LISINOPRIL [Concomitant]
  10. OXYCODONE/ACETAMINOPHEN 5/325 [Concomitant]
  11. OMEPRAZOLE [Concomitant]
  12. ASPIRIN [Concomitant]
  13. CLOPIDOGREL [Concomitant]
  14. ZOLPIDEM [Concomitant]

REACTIONS (4)
  - Melaena [None]
  - International normalised ratio increased [None]
  - Gastritis [None]
  - Catheter site haematoma [None]
